FAERS Safety Report 13254327 (Version 1)
Quarter: 2017Q1

REPORT INFORMATION
  Report Type: Spontaneous
  Country: US (occurrence: US)
  Receive Date: 20170221
  Receipt Date: 20170221
  Transmission Date: 20170428
  Serious: No
  Sender: FDA-Public Use
  Company Number: US-TEVA-730233ACC

PATIENT
  Sex: Female

DRUGS (1)
  1. PRIMIDONE. [Suspect]
     Active Substance: PRIMIDONE

REACTIONS (3)
  - Gastric disorder [Unknown]
  - Presyncope [Unknown]
  - Feeling hot [Unknown]

NARRATIVE: CASE EVENT DATE: 20170111
